FAERS Safety Report 5589440-5 (Version None)
Quarter: 2008Q1

REPORT INFORMATION
  Report Type: 
  Country: None (occurrence: None)
  Receive Date: 20080108
  Receipt Date: 20080108
  Transmission Date: 20080703
  Serious: Yes (Hospitalization, Other)
  Sender: FDA-Public Use
  Company Number: None

PATIENT
  Age: 34 Year
  Sex: Male
  Weight: 80.2 kg

DRUGS (13)
  1. PROLEUKIN [Suspect]
     Indication: GRAFT VERSUS HOST DISEASE
     Dosage: 0.3 X 10^6 IU/M^2/D DAILY; ROUTE USED 057
     Dates: start: 20071128, end: 20071223
  2. ACYCLOVIR [Concomitant]
  3. BIAXIN [Concomitant]
  4. DECADRON ELIXIR [Concomitant]
  5. POTASSIUM LOTREL [Concomitant]
  6. MEPRON [Concomitant]
  7. VITAMIN CAP [Concomitant]
  8. PREDNISONE [Concomitant]
  9. SIROLIMUS [Concomitant]
  10. TACROLIMUS [Concomitant]
  11. TOPAMAX [Concomitant]
  12. CEFUROXIME [Concomitant]
  13. ALBUTEROL [Concomitant]

REACTIONS (3)
  - HAEMOPHILUS SEPSIS [None]
  - PAIN [None]
  - THROMBOCYTOPENIA [None]
